FAERS Safety Report 8291262-1 (Version None)
Quarter: 2012Q2

REPORT INFORMATION
  Report Type: 
  Country: None (occurrence: None)
  Receive Date: 20120417
  Receipt Date: 20120410
  Transmission Date: 20120825
  Serious: Yes (Hospitalization)
  Sender: FDA-Public Use
  Company Number: US-BAYER-2011-094501

PATIENT
  Age: 26 Year
  Sex: Female
  Weight: 131.7 kg

DRUGS (10)
  1. METRONIDAZOLE [Concomitant]
     Indication: FUNGAL INFECTION
     Dosage: 500 MG, UNK
     Dates: start: 20090519, end: 20090526
  2. FUROSEMIDE [Concomitant]
     Indication: OEDEMA PERIPHERAL
     Dosage: 20 MG, UNK
     Dates: start: 20090628
  3. KEPPRA [Concomitant]
  4. IBUPROFEN (ADVIL) [Concomitant]
     Indication: HEADACHE
     Dosage: UNK UNK, PRN
     Dates: start: 20090101
  5. LASIX [Concomitant]
  6. SEPTRA DS [Concomitant]
     Indication: URINARY TRACT INFECTION
     Dosage: UNK
     Dates: start: 20090628
  7. ROBAXIN [Concomitant]
     Dosage: 500 MG, UNK
     Dates: start: 20090620
  8. YAZ [Suspect]
     Indication: AMENORRHOEA
     Dosage: UNK
     Dates: start: 20090601, end: 20090629
  9. MOTRIN [Concomitant]
     Indication: OEDEMA PERIPHERAL
     Dosage: 800 MG, UNK
     Route: 048
     Dates: start: 20090620, end: 20090709
  10. METHOCARBAMOL [Concomitant]

REACTIONS (10)
  - PAIN IN EXTREMITY [None]
  - DIZZINESS [None]
  - PULMONARY EMBOLISM [None]
  - ANXIETY [None]
  - OEDEMA PERIPHERAL [None]
  - ABDOMINAL PAIN UPPER [None]
  - DYSPNOEA [None]
  - GENERAL PHYSICAL HEALTH DETERIORATION [None]
  - DEEP VEIN THROMBOSIS [None]
  - EMOTIONAL DISTRESS [None]
